FAERS Safety Report 22311946 (Version 1)
Quarter: 2023Q2

REPORT INFORMATION
  Report Type: Spontaneous
  Country: IN (occurrence: IN)
  Receive Date: 20230512
  Receipt Date: 20230512
  Transmission Date: 20230722
  Serious: Yes (Hospitalization, Other)
  Sender: FDA-Public Use
  Company Number: None

PATIENT
  Age: 3 Year
  Sex: Female

DRUGS (4)
  1. METHYLPREDNISOLONE [Suspect]
     Active Substance: METHYLPREDNISOLONE
     Indication: Product used for unknown indication
     Dosage: UNK,  UNK
  2. PREDNISOLONE [Suspect]
     Active Substance: PREDNISOLONE
     Indication: Product used for unknown indication
     Dosage: UNK,  UNK
     Route: 048
  3. VORICONAZOLE [Concomitant]
     Active Substance: VORICONAZOLE
     Indication: Product used for unknown indication
     Dosage: UNK,  UNK
     Route: 048
  4. AMPHOTERICIN B [Concomitant]
     Active Substance: AMPHOTERICIN B
     Indication: Product used for unknown indication
     Dosage: UNK,  UNK

REACTIONS (4)
  - Infection reactivation [Unknown]
  - Pulmonary tuberculosis [Unknown]
  - Hypertension [Recovering/Resolving]
  - Posterior reversible encephalopathy syndrome [Recovering/Resolving]
